FAERS Safety Report 12251627 (Version 1)
Quarter: 2016Q2

REPORT INFORMATION
  Report Type: Spontaneous
  Country: US (occurrence: US)
  Receive Date: 20160410
  Receipt Date: 20160410
  Transmission Date: 20160815
  Serious: Yes (Other)
  Sender: FDA-Public Use
  Company Number: US-AMGEN-USASP2016037609

PATIENT
  Age: 32 Year
  Sex: Female

DRUGS (1)
  1. NEULASTA [Suspect]
     Active Substance: PEGFILGRASTIM
     Indication: PRODUCT USED FOR UNKNOWN INDICATION
     Dosage: UNK, UNK
     Route: 065

REACTIONS (9)
  - Underdose [Unknown]
  - Abdominal discomfort [Recovering/Resolving]
  - Application site pain [Recovering/Resolving]
  - White blood cell count decreased [Unknown]
  - Syncope [Recovering/Resolving]
  - Wrong technique in product usage process [Unknown]
  - Needle issue [Unknown]
  - Application site induration [Recovering/Resolving]
  - Adverse drug reaction [Recovering/Resolving]

NARRATIVE: CASE EVENT DATE: 20160323
